FAERS Safety Report 24016086 (Version 1)
Quarter: 2024Q2

REPORT INFORMATION
  Report Type: Spontaneous
  Country: DE (occurrence: DE)
  Receive Date: 20240626
  Receipt Date: 20240626
  Transmission Date: 20240715
  Serious: Yes (Other)
  Sender: FDA-Public Use
  Company Number: DE-AMGEN-DEUSP2024123771

PATIENT
  Sex: Female

DRUGS (2)
  1. UPLIZNA [Suspect]
     Active Substance: INEBILIZUMAB-CDON
     Indication: Neuromyelitis optica spectrum disorder
     Dosage: FIRST INFUSION, Q2WK
     Route: 042
     Dates: start: 20231103
  2. UPLIZNA [Suspect]
     Active Substance: INEBILIZUMAB-CDON
     Dosage: SECOND INFUSION, Q2WK
     Route: 042
     Dates: start: 20231117

REACTIONS (2)
  - Neuromyelitis optica spectrum disorder [Unknown]
  - B-lymphocyte count increased [Unknown]

NARRATIVE: CASE EVENT DATE: 20240301
